FAERS Safety Report 12284729 (Version 4)
Quarter: 2016Q4

REPORT INFORMATION
  Report Type: Spontaneous
  Country: US (occurrence: US)
  Receive Date: 20160420
  Receipt Date: 20161212
  Transmission Date: 20170207
  Serious: Yes (Other)
  Sender: FDA-Public Use
  Company Number: US-TEVA-644810USA

PATIENT
  Age: 42 Year
  Sex: Female

DRUGS (8)
  1. EFFEXOR [Concomitant]
     Active Substance: VENLAFAXINE HYDROCHLORIDE
  2. ZOMIG NS [Concomitant]
  3. SUMAVEL DOSE PRO [Concomitant]
  4. ZECUITY [Suspect]
     Active Substance: SUMATRIPTAN SUCCINATE
     Indication: MIGRAINE
     Route: 062
     Dates: start: 20160222
  5. ADDERALL [Concomitant]
     Active Substance: AMPHETAMINE ASPARTATE\AMPHETAMINE SULFATE\DEXTROAMPHETAMINE SACCHARATE\DEXTROAMPHETAMINE SULFATE
  6. AMITRIPTYLINE [Concomitant]
     Active Substance: AMITRIPTYLINE
  7. LEVOTHYROXINE. [Concomitant]
     Active Substance: LEVOTHYROXINE
  8. KLONOPIN [Concomitant]
     Active Substance: CLONAZEPAM

REACTIONS (17)
  - Application site burn [Recovered/Resolved]
  - Application site erythema [Recovered/Resolved]
  - Application site exfoliation [Recovered/Resolved]
  - Application site warmth [Recovered/Resolved]
  - Drug effect incomplete [Unknown]
  - Application site paraesthesia [Recovered/Resolved]
  - Circumstance or information capable of leading to medication error [Unknown]
  - Dry skin [Recovered/Resolved]
  - Application site discolouration [Recovered/Resolved]
  - Application site irritation [Recovered/Resolved]
  - Application site pain [Recovered/Resolved]
  - Product leakage [Unknown]
  - Folliculitis [Unknown]
  - Device battery issue [Unknown]
  - Product adhesion issue [Unknown]
  - Application site discomfort [Recovered/Resolved]
  - Application site erosion [Recovered/Resolved]

NARRATIVE: CASE EVENT DATE: 20160222
